FAERS Safety Report 24613233 (Version 1)
Quarter: 2024Q4

REPORT INFORMATION
  Report Type: Spontaneous
  Country: CN (occurrence: CN)
  Receive Date: 20241113
  Receipt Date: 20241113
  Transmission Date: 20250115
  Serious: Yes (Other)
  Sender: BAXTER
  Company Number: None

PATIENT
  Age: 37 Year
  Sex: Female
  Weight: 50 kg

DRUGS (6)
  1. CYCLOPHOSPHAMIDE [Suspect]
     Active Substance: CYCLOPHOSPHAMIDE
     Indication: Breast cancer female
     Dosage: 0.8 G, ONE TIME IN ONE DAY (ST) DILUTED WITH 0.9% SODIUM CHLORIDE 100 ML, START TIME: AT 10: 30
     Route: 041
     Dates: start: 20241029, end: 20241029
  2. CYCLOPHOSPHAMIDE [Suspect]
     Active Substance: CYCLOPHOSPHAMIDE
     Indication: Chemotherapy
  3. DEXTROSE [Suspect]
     Active Substance: DEXTROSE MONOHYDRATE
     Indication: Medication dilution
     Dosage: 100 ML, ONE TIME IN ONE DAY (ST), INJECTION, USED TO DILUTE PIRARUBICIN 60 MG, START TIME: AT 10: 30
     Route: 041
     Dates: start: 20241029, end: 20241029
  4. SODIUM CHLORIDE [Suspect]
     Active Substance: SODIUM CHLORIDE
     Indication: Medication dilution
     Dosage: 100 ML, ONE TIME IN ONE DAY (ST), INJECTION, USED TO DILUTE CYCLOPHOSPHAMIDE 0.8 G, START TIME: AT 1
     Route: 041
     Dates: start: 20241029, end: 20241029
  5. PIRARUBICIN HYDROCHLORIDE [Suspect]
     Active Substance: PIRARUBICIN HYDROCHLORIDE
     Indication: Breast cancer female
     Dosage: 60 MG, ONE TIME IN ONE DAY (ST) DILUTED WITH 5% GLUCOSE INJECTION 100 ML
     Route: 041
     Dates: start: 20241029, end: 20241029
  6. PIRARUBICIN HYDROCHLORIDE [Suspect]
     Active Substance: PIRARUBICIN HYDROCHLORIDE
     Indication: Chemotherapy

REACTIONS (2)
  - Nausea [Recovering/Resolving]
  - Vomiting [Recovering/Resolving]

NARRATIVE: CASE EVENT DATE: 20241030
